FAERS Safety Report 25041465 (Version 1)
Quarter: 2025Q1

REPORT INFORMATION
  Report Type: Spontaneous
  Country: JP (occurrence: JP)
  Receive Date: 20250305
  Receipt Date: 20250305
  Transmission Date: 20250408
  Serious: Yes (Disabling, Other)
  Sender: PFIZER
  Company Number: JP-PFIZER INC-PV202500025593

PATIENT
  Age: 7 Decade
  Sex: Female

DRUGS (6)
  1. TRASTUZUMAB [Suspect]
     Active Substance: TRASTUZUMAB
     Indication: Metastasis
  2. TRASTUZUMAB [Suspect]
     Active Substance: TRASTUZUMAB
     Indication: HER2 positive breast cancer
  3. DOCETAXEL [Suspect]
     Active Substance: DOCETAXEL
     Indication: Metastasis
  4. DOCETAXEL [Suspect]
     Active Substance: DOCETAXEL
     Indication: HER2 positive breast cancer
  5. PERTUZUMAB [Suspect]
     Active Substance: PERTUZUMAB
     Indication: Metastasis
  6. PERTUZUMAB [Suspect]
     Active Substance: PERTUZUMAB
     Indication: HER2 positive breast cancer

REACTIONS (1)
  - Organising pneumonia [Recovered/Resolved]
